FAERS Safety Report 13536513 (Version 2)
Quarter: 2017Q2

REPORT INFORMATION
  Report Type: Spontaneous
  Country: MX (occurrence: MX)
  Receive Date: 20170511
  Receipt Date: 20170517
  Transmission Date: 20170830
  Serious: Yes (Death, Other)
  Sender: FDA-Public Use
  Company Number: MX-ALEXION PHARMACEUTICALS INC.-A201705111

PATIENT
  Age: 3 Year
  Sex: Female

DRUGS (2)
  1. SOLIRIS [Suspect]
     Active Substance: ECULIZUMAB
     Dosage: 300 MG, TIW
     Route: 042
     Dates: start: 20161107
  2. SOLIRIS [Suspect]
     Active Substance: ECULIZUMAB
     Indication: HAEMOLYTIC URAEMIC SYNDROME
     Dosage: 300 MG, UNK
     Route: 042
     Dates: start: 20161010, end: 20161101

REACTIONS (4)
  - Sepsis [Fatal]
  - Hypoxia [Fatal]
  - Thrombocytopenia [Unknown]
  - Epistaxis [Unknown]

NARRATIVE: CASE EVENT DATE: 20170510
